FAERS Safety Report 24444212 (Version 2)
Quarter: 2024Q4

REPORT INFORMATION
  Report Type: Report from Study
  Country: US (occurrence: US)
  Receive Date: 20241016
  Receipt Date: 20241017
  Transmission Date: 20250115
  Serious: No
  Sender: ROCHE
  Company Number: US-ROCHE-2823664

PATIENT
  Age: 69 Year
  Sex: Female

DRUGS (1)
  1. RITUXAN [Suspect]
     Active Substance: RITUXIMAB
     Indication: Microscopic polyangiitis
     Dosage: STRENGTH: 500 MG, QUANTITY: 1 X 500 MG VIAL FREQUENCY: 500 MG DAY 1 AND DAY 15 DATE OF TREATMENT : 1
     Route: 042

REACTIONS (2)
  - Off label use [Unknown]
  - No adverse event [Unknown]
